FAERS Safety Report 11106104 (Version 3)
Quarter: 2015Q3

REPORT INFORMATION
  Report Type: Spontaneous
  Country: US (occurrence: US)
  Receive Date: 20150512
  Receipt Date: 20150714
  Transmission Date: 20151125
  Serious: Yes (Other)
  Sender: FDA-Public Use
  Company Number: US-BIOGENIDEC-2015BI061501

PATIENT
  Sex: Female

DRUGS (16)
  1. SIMVASTATIN. [Concomitant]
     Active Substance: SIMVASTATIN
  2. DICYCLOMINE [Concomitant]
     Active Substance: DICYCLOMINE HYDROCHLORIDE
  3. HYDROCORTISONE VALERATE. [Concomitant]
     Active Substance: HYDROCORTISONE VALERATE
  4. COLACE [Concomitant]
     Active Substance: DOCUSATE SODIUM
  5. ALLOPURINOL SODIUM. [Concomitant]
     Active Substance: ALLOPURINOL SODIUM
  6. BACLOFEN. [Concomitant]
     Active Substance: BACLOFEN
  7. VENLAFAXINE HYDROCHLORIDE. [Concomitant]
     Active Substance: VENLAFAXINE HYDROCHLORIDE
  8. OYSTER SHELL (CALCIUM CARBONATE) [Concomitant]
  9. CARAFATE (SUCRALFATE) [Concomitant]
  10. ZEGERID (OMEPRAZOLE) [Concomitant]
  11. AVONEX [Suspect]
     Active Substance: INTERFERON BETA-1A
     Indication: PRODUCT USED FOR UNKNOWN INDICATION
     Route: 030
  12. AMPYRA [Concomitant]
     Active Substance: DALFAMPRIDINE
     Indication: MULTIPLE SCLEROSIS
  13. VITAMIN D (COLECALCIFEROL) [Concomitant]
  14. DETROL LA [Concomitant]
     Active Substance: TOLTERODINE TARTRATE
  15. OXYCODONE [Concomitant]
     Active Substance: OXYCODONE
  16. COZAAR (LOSARTAN POTASSIUM) [Concomitant]

REACTIONS (5)
  - Memory impairment [Unknown]
  - Transient ischaemic attack [Unknown]
  - Gait disturbance [Unknown]
  - Multiple sclerosis relapse [Unknown]
  - Hypoaesthesia [Unknown]

NARRATIVE: CASE EVENT DATE: 2014
